FAERS Safety Report 6507059-6 (Version None)
Quarter: 2009Q4

REPORT INFORMATION
  Report Type: 
  Country: None (occurrence: None)
  Receive Date: 20091221
  Receipt Date: 20091208
  Transmission Date: 20100525
  Serious: Yes (Hospitalization, Other)
  Sender: FDA-Public Use
  Company Number: PHHY2009CA20531

PATIENT
  Sex: Female

DRUGS (1)
  1. SANDOSTATIN LAR [Suspect]
     Indication: CARCINOID TUMOUR
     Dosage: 30 MG, ONCE A MONTH
     Route: 030
     Dates: start: 20050729

REACTIONS (10)
  - ABASIA [None]
  - ABDOMINAL CAVITY DRAINAGE [None]
  - CEREBRAL HAEMORRHAGE [None]
  - DIABETES MELLITUS [None]
  - DYSPNOEA [None]
  - FALL [None]
  - HYPERTENSION [None]
  - MALAISE [None]
  - MALIGNANT NEOPLASM PROGRESSION [None]
  - SWELLING [None]
